FAERS Safety Report 7806590-0 (Version None)
Quarter: 2011Q4

REPORT INFORMATION
  Report Type: 
  Country: None (occurrence: None)
  Receive Date: 20111011
  Receipt Date: 20110930
  Transmission Date: 20120403
  Serious: Yes (Hospitalization)
  Sender: FDA-Public Use
  Company Number: US-NOVOPROD-336670

PATIENT

DRUGS (1)
  1. NORDITROPIN NORDIFLEX [Suspect]
     Indication: HYPOPITUITARISM
     Dosage: UNK
     Dates: end: 20110922

REACTIONS (1)
  - LIVER DISORDER [None]
